FAERS Safety Report 5518427-3 (Version None)
Quarter: 2007Q4

REPORT INFORMATION
  Report Type: 
  Country: None (occurrence: None)
  Receive Date: 20071115
  Receipt Date: 20071113
  Transmission Date: 20080405
  Serious: Yes (Life-Threatening, Hospitalization, Disabling)
  Sender: FDA-Public Use
  Company Number: NL-SANOFI-SYNTHELABO-F01200700507

PATIENT
  Sex: Female

DRUGS (3)
  1. FLUOROURACIL [Suspect]
     Dosage: 400MG/M2 IV BOLUS AND 600MG/M2 CONTINUOUS INFUSION Q2W
     Route: 042
     Dates: start: 20070403
  2. OXALIPLATIN [Suspect]
     Indication: COLON CANCER
     Dosage: DOSE NOT SPECIFIED
     Route: 042
     Dates: start: 20070403, end: 20070403
  3. LEUCOVORIN CALCIUM [Suspect]
     Route: 042
     Dates: start: 20070403

REACTIONS (2)
  - DIARRHOEA [None]
  - GASTROINTESTINAL NECROSIS [None]
